FAERS Safety Report 4855102-2 (Version None)
Quarter: 2005Q4

REPORT INFORMATION
  Report Type: 
  Country: None (occurrence: None)
  Receive Date: 20051215
  Receipt Date: 20051205
  Transmission Date: 20060501
  Serious: Yes (Hospitalization)
  Sender: FDA-Public Use
  Company Number: FR-SANOFI-SYNTHELABO-A02200503213

PATIENT
  Age: 82 Year
  Sex: Male

DRUGS (10)
  1. STILNOX [Suspect]
     Indication: SENILE DEMENTIA
     Route: 048
     Dates: start: 20050802, end: 20050901
  2. STILNOX [Suspect]
     Route: 048
     Dates: start: 20050928
  3. NOCTAMIDE [Suspect]
     Indication: SENILE DEMENTIA
     Route: 048
     Dates: start: 20050923, end: 20050928
  4. VALIUM [Suspect]
     Indication: SENILE DEMENTIA
     Dosage: 6.6 MG
     Route: 048
     Dates: start: 20050917, end: 20050928
  5. SEROPRAM [Suspect]
     Indication: SENILE DEMENTIA
     Route: 048
     Dates: start: 20050802, end: 20050901
  6. SEROPRAM [Suspect]
     Route: 048
     Dates: start: 20050928
  7. LEPONEX [Suspect]
     Indication: SENILE DEMENTIA
     Route: 048
     Dates: start: 20050802, end: 20050901
  8. LEPONEX [Suspect]
     Route: 048
     Dates: start: 20050928
  9. XANAX [Concomitant]
     Indication: SENILE DEMENTIA
     Route: 048
     Dates: start: 20050928
  10. CASODEX [Concomitant]
     Indication: PROSTATE CANCER
     Dosage: UNK
     Route: 048
     Dates: start: 19990101

REACTIONS (1)
  - MENINGITIS ASEPTIC [None]
